FAERS Safety Report 18128075 (Version 1)
Quarter: 2020Q3

REPORT INFORMATION
  Report Type: Spontaneous
  Country: US (occurrence: US)
  Receive Date: 20200806
  Receipt Date: 20200806
  Transmission Date: 20201103
  Serious: Yes (Hospitalization)
  Sender: FDA-Public Use
  Company Number: None

PATIENT
  Age: 60 Year
  Sex: Male
  Weight: 61 kg

DRUGS (2)
  1. OXALIPLATIN (OXALIPLATIN 100MG/VIL (PF) INJ) [Suspect]
     Active Substance: OXALIPLATIN
     Indication: CHOLANGIOCARCINOMA
     Route: 042
     Dates: start: 20200520
  2. GEMCITABINE (GEMCITABINE HCL 200MG/VIL INJ) [Suspect]
     Active Substance: GEMCITABINE HYDROCHLORIDE
     Route: 042
     Dates: start: 20200520

REACTIONS (4)
  - Hypokalaemia [None]
  - Hypomagnesaemia [None]
  - Hypophosphataemia [None]
  - Hypocalcaemia [None]

NARRATIVE: CASE EVENT DATE: 20200603
